FAERS Safety Report 6164205-4 (Version None)
Quarter: 2009Q2

REPORT INFORMATION
  Report Type: 
  Country: None (occurrence: None)
  Receive Date: 20090422
  Receipt Date: 20090410
  Transmission Date: 20091009
  Serious: Yes (Other)
  Sender: FDA-Public Use
  Company Number: US-WYE-H08923909

PATIENT
  Sex: Female

DRUGS (5)
  1. PRISTIQ [Suspect]
     Route: 048
     Dates: start: 20081101
  2. CYANOCOBALAMIN [Concomitant]
     Dosage: UNKNOWN
     Route: 065
  3. ERGOCALCIFEROL [Suspect]
     Dosage: UNKNOWN
     Route: 065
  4. ERGOCALCIFEROL [Suspect]
     Route: 065
  5. ADDERALL 10 [Concomitant]
     Route: 065

REACTIONS (3)
  - CORONARY ARTERY DISEASE [None]
  - DEEP VEIN THROMBOSIS [None]
  - DYSPNOEA [None]
